FAERS Safety Report 11688891 (Version 2)
Quarter: 2017Q2

REPORT INFORMATION
  Report Type: Report from Study
  Country: DE (occurrence: DE)
  Receive Date: 20151102
  Receipt Date: 20170515
  Transmission Date: 20170829
  Serious: Yes (Other)
  Sender: FDA-Public Use
  Company Number: DE-ROCHE-1653663

PATIENT
  Sex: Male

DRUGS (6)
  1. PEGFILGRASTIM [Suspect]
     Active Substance: PEGFILGRASTIM
     Indication: B-CELL LYMPHOMA
     Route: 058
     Dates: start: 20151017
  2. CYCLOPHOSPHAMIDE. [Suspect]
     Active Substance: CYCLOPHOSPHAMIDE
     Indication: B-CELL LYMPHOMA
     Dosage: DATE OF LAST CYCLE OF CYCLOPHOSPHAMIDE PRIOR TO SAE DEEP VEIN THROMBOSIS: 19/OCT/2015
     Route: 042
     Dates: start: 20151015
  3. VINCRISTINE [Suspect]
     Active Substance: VINCRISTINE
     Indication: B-CELL LYMPHOMA
     Dosage: DATE OF LAST CYCLE OF VINCRISTINE PRIOR TO SAE DEEP VEIN THROMBOSIS: 19/OCT/2015
     Route: 042
     Dates: start: 20151015
  4. DOXORUBICIN [Suspect]
     Active Substance: DOXORUBICIN
     Indication: B-CELL LYMPHOMA
     Dosage: DATE OF LAST CYCLE OF DOXORUBICIN PRIOR TO SAE DEEP VEIN THROMBOSIS: 19/OCT/2015
     Route: 042
     Dates: start: 20151015
  5. RITUXIMAB [Suspect]
     Active Substance: RITUXIMAB
     Indication: B-CELL LYMPHOMA
     Dosage: CYCLE-1
     Route: 042
     Dates: start: 20151014
  6. PREDNISOLONE. [Suspect]
     Active Substance: PREDNISOLONE
     Indication: B-CELL LYMPHOMA
     Dosage: DATE OF LAST CYCLE OF PREDNISOLONE PRIOR TO SAE DEEP VEIN THROMBOSIS: 19/OCT/2015
     Route: 048
     Dates: start: 20151015

REACTIONS (1)
  - Deep vein thrombosis [Recovered/Resolved]

NARRATIVE: CASE EVENT DATE: 20151024
